FAERS Safety Report 6534418-8 (Version None)
Quarter: 2010Q1

REPORT INFORMATION
  Report Type: 
  Country: None (occurrence: None)
  Receive Date: 20100108
  Receipt Date: 20100108
  Transmission Date: 20100710
  Serious: No
  Sender: FDA-Public Use
  Company Number: None

PATIENT
  Age: 70 Year
  Sex: Male

DRUGS (2)
  1. TEKTURNA [Suspect]
     Indication: HYPERTENSION
     Dates: start: 20091103, end: 20091208
  2. GLIPIZIDE [Suspect]

REACTIONS (8)
  - COUGH [None]
  - DYSPNOEA [None]
  - FATIGUE [None]
  - FEELING ABNORMAL [None]
  - GASTROINTESTINAL DISORDER [None]
  - HYPERTENSION [None]
  - INFLUENZA [None]
  - MALAISE [None]
